FAERS Safety Report 6641741-5 (Version None)
Quarter: 2010Q1

REPORT INFORMATION
  Report Type: 
  Country: None (occurrence: None)
  Receive Date: 20100319
  Receipt Date: 20100311
  Transmission Date: 20100710
  Serious: Yes (Disabling)
  Sender: FDA-Public Use
  Company Number: DK-BIOGENIDEC-2010BI008281

PATIENT
  Age: 52 Year
  Sex: Female

DRUGS (3)
  1. AVONEX [Suspect]
     Indication: MULTIPLE SCLEROSIS
     Route: 030
     Dates: start: 20070215, end: 20090327
  2. KININ DAK [Concomitant]
     Dates: start: 20030601
  3. DETRUSITOL [Concomitant]
     Dates: start: 20000101

REACTIONS (1)
  - PRURITUS [None]
